FAERS Safety Report 24066471 (Version 1)
Quarter: 2024Q3

REPORT INFORMATION
  Report Type: Spontaneous
  Country: US (occurrence: None)
  Receive Date: 20240709
  Receipt Date: 20240709
  Transmission Date: 20241017
  Serious: Yes (Hospitalization)
  Sender: Public
  Company Number: None

PATIENT
  Sex: Female

DRUGS (10)
  1. MYCOPHENOLIC ACID [Suspect]
     Active Substance: MYCOPHENOLIC ACID
     Indication: Renal transplant
     Dosage: FREQUENCY : TWICE A DAY;?
     Route: 048
     Dates: start: 20171031
  2. TACROLIMUS [Concomitant]
     Active Substance: TACROLIMUS
  3. TACROLIMUS A [Concomitant]
  4. PREDNISONE [Concomitant]
     Active Substance: PREDNISONE
  5. KETOROLAC [Concomitant]
     Active Substance: KETOROLAC TROMETHAMINE
  6. OFLOXACIN [Concomitant]
     Active Substance: OFLOXACIN
  7. PREDNISOLONE [Concomitant]
     Active Substance: PREDNISOLONE
  8. WARFARIN [Concomitant]
     Active Substance: WARFARIN
  9. CINACALCET [Concomitant]
     Active Substance: CINACALCET
  10. PRAVASTATIN [Concomitant]
     Active Substance: PRAVASTATIN

REACTIONS (2)
  - Hospitalisation [None]
  - Product dose omission issue [None]
